FAERS Safety Report 9219838 (Version 2)
Quarter: 2013Q3

REPORT INFORMATION
  Report Type: Report from Study
  Country: JP (occurrence: JP)
  Receive Date: 20130409
  Receipt Date: 20130726
  Transmission Date: 20140515
  Serious: Yes (Death)
  Sender: FDA-Public Use
  Company Number: JP-OTSUKA-JP-2013-10867

PATIENT
  Age: 84 Year
  Sex: Female
  Weight: 46 kg

DRUGS (5)
  1. SAMSCA [Suspect]
     Indication: FLUID RETENTION
     Dosage: 7.5 MG MILLIGRAM(S), QAM
     Route: 048
     Dates: start: 20130109, end: 20130122
  2. HALFDIGOXIN [Concomitant]
     Indication: CARDIAC FAILURE
     Dosage: 0.125 MG MILLIGRAM(S), DAILY DOSE
     Route: 048
     Dates: end: 20130123
  3. SPIRONOLACTONE [Concomitant]
     Indication: CARDIAC FAILURE
     Dosage: 25 MG MILLIGRAM(S), DAILY DOSE
     Route: 048
     Dates: end: 20130123
  4. BAYASPIRIN [Concomitant]
     Dosage: 100 MG MILLIGRAM(S), DAILY DOSE
     Route: 048
     Dates: end: 20130123
  5. LASIX [Concomitant]
     Indication: CARDIAC FAILURE
     Dosage: 60 MG MILLIGRAM(S), DAILY DOSE
     Route: 048
     Dates: end: 20130123

REACTIONS (1)
  - Cardiac failure [Fatal]
